FAERS Safety Report 11092193 (Version 1)
Quarter: 2015Q2

REPORT INFORMATION
  Report Type: Spontaneous
  Country: US (occurrence: US)
  Receive Date: 20150506
  Receipt Date: 20150506
  Transmission Date: 20150821
  Serious: Yes (Other)
  Sender: FDA-Public Use
  Company Number: US-JNJFOC-20150419307

PATIENT
  Age: 34 Year
  Sex: Female
  Weight: 63.5 kg

DRUGS (1)
  1. BENADRYL [Suspect]
     Active Substance: DIPHENHYDRAMINE HYDROCHLORIDE
     Indication: DRUG HYPERSENSITIVITY
     Route: 048
     Dates: start: 201504

REACTIONS (1)
  - Drug ineffective for unapproved indication [Unknown]
